FAERS Safety Report 7207735-6 (Version None)
Quarter: 2011Q1

REPORT INFORMATION
  Report Type: 
  Country: None (occurrence: None)
  Receive Date: 20110103
  Receipt Date: 20101227
  Transmission Date: 20110831
  Serious: Yes (Hospitalization, Other)
  Sender: FDA-Public Use
  Company Number: CH-JNJFOC-20101208167

PATIENT
  Age: 85 Year
  Sex: Female
  Weight: 52.4 kg

DRUGS (13)
  1. CIPRALEX [Suspect]
     Dosage: AUGMENTATION 5MG AND 10MG
     Route: 065
  2. MG 5-LONGORAL [Concomitant]
  3. UNKNOWN MEDICATION [Concomitant]
  4. CALCIMAGON-D3 [Suspect]
     Indication: ILL-DEFINED DISORDER
     Route: 048
  5. OMEPRAZOLE [Concomitant]
  6. RISPERDAL [Suspect]
     Indication: ILL-DEFINED DISORDER
     Route: 048
  7. COVERSUM [Concomitant]
     Route: 048
  8. DAFALGAN [Concomitant]
  9. ASPIRIN [Concomitant]
  10. LYRICA [Concomitant]
     Route: 048
  11. CIPRALEX [Suspect]
     Indication: ILL-DEFINED DISORDER
     Route: 065
  12. FLUOROMETHOLONE [Concomitant]
     Route: 047
  13. FOSAMAX [Concomitant]
     Route: 048

REACTIONS (10)
  - SALIVARY HYPERSECRETION [None]
  - GAIT DISTURBANCE [None]
  - DISORIENTATION [None]
  - DYSPHAGIA [None]
  - HYPERCALCAEMIA [None]
  - ANGER [None]
  - ANXIETY [None]
  - GENERAL PHYSICAL HEALTH DETERIORATION [None]
  - PARKINSONISM [None]
  - SOMNOLENCE [None]
